FAERS Safety Report 5049859-8 (Version None)
Quarter: 2006Q3

REPORT INFORMATION
  Report Type: 
  Country: None (occurrence: None)
  Receive Date: 20060706
  Receipt Date: 20060622
  Transmission Date: 20061208
  Serious: Yes (Death, Hospitalization, Other)
  Sender: FDA-Public Use
  Company Number: A-US2006-12498

PATIENT
  Age: 47 Year
  Sex: Female
  Weight: 70.3 kg

DRUGS (22)
  1. TRACLEER [Suspect]
     Indication: PULMONARY HYPERTENSION
     Dosage: SEE IMAGE
     Route: 048
     Dates: start: 20051201, end: 20060405
  2. TRACLEER [Suspect]
     Indication: PULMONARY HYPERTENSION
     Dosage: SEE IMAGE
     Route: 048
     Dates: start: 20060406, end: 20060604
  3. AMARYL [Suspect]
     Indication: DIABETES MELLITUS NON-INSULIN-DEPENDENT
     Dosage: 4 MG, QAM,
  4. SILDENAFIL CITRATE [Concomitant]
  5. COUMADIN [Concomitant]
  6. LASIX [Concomitant]
  7. K-DUR 10 [Concomitant]
  8. SPIRONOLACTONE [Concomitant]
  9. CORTEF [Concomitant]
  10. LANOXIN [Concomitant]
  11. ZAROXOLYN [Concomitant]
  12. REGLAN [Concomitant]
  13. PHENERGAN (PROMETHAZINE HYDROCHLORIDE) [Concomitant]
  14. SEROQUEL [Concomitant]
  15. EFFEXOR [Concomitant]
  16. ATIVAN [Concomitant]
  17. BENADRYL [Concomitant]
  18. HALDOL [Concomitant]
  19. TRILAFON [Concomitant]
  20. KAY CIEL DURA-TABS [Concomitant]
  21. KAYEXALATE [Concomitant]
  22. GLUCOSE (GLUCOSE) [Concomitant]

REACTIONS (34)
  - ACUTE PSYCHOSIS [None]
  - ADRENAL INSUFFICIENCY [None]
  - BLOOD CALCIUM DECREASED [None]
  - BLOOD GLUCOSE DECREASED [None]
  - BLOOD POTASSIUM DECREASED [None]
  - BLOOD SODIUM DECREASED [None]
  - CYANOSIS [None]
  - DELUSION [None]
  - DEPRESSED LEVEL OF CONSCIOUSNESS [None]
  - DEPRESSION [None]
  - DIABETES MELLITUS [None]
  - DISTURBANCE IN ATTENTION [None]
  - DRUG INTERACTION [None]
  - HALLUCINATION, AUDITORY [None]
  - HEPATIC CONGESTION [None]
  - HEPATIC FAILURE [None]
  - HYPERKALAEMIA [None]
  - HYPOGLYCAEMIA [None]
  - HYPONATRAEMIA [None]
  - HYPOTENSION [None]
  - HYPOXIA [None]
  - INTERNATIONAL NORMALISED RATIO INCREASED [None]
  - MALAISE [None]
  - MANIA [None]
  - OXYGEN CONSUMPTION DECREASED [None]
  - PARANOIA [None]
  - PULMONARY HYPERTENSION [None]
  - REFUSAL OF TREATMENT BY PATIENT [None]
  - RENAL FAILURE ACUTE [None]
  - RENAL IMPAIRMENT [None]
  - RESTLESSNESS [None]
  - RIGHT VENTRICULAR FAILURE [None]
  - TREATMENT NONCOMPLIANCE [None]
  - WEIGHT DECREASED [None]
